FAERS Safety Report 9632957 (Version 3)
Quarter: 2013Q4

REPORT INFORMATION
  Report Type: Report from Study
  Country: DE (occurrence: DE)
  Receive Date: 20131018
  Receipt Date: 20131022
  Transmission Date: 20140711
  Serious: Yes (Hospitalization, Other)
  Sender: FDA-Public Use
  Company Number: DE-ABBVIE-13P-062-1142554-00

PATIENT
  Age: 76 Year
  Sex: Female
  Weight: 74 kg

DRUGS (16)
  1. HUMIRA [Suspect]
     Indication: RHEUMATOID ARTHRITIS
     Route: 058
     Dates: start: 20130319
  2. LYRICA [Suspect]
     Indication: PRODUCT USED FOR UNKNOWN INDICATION
  3. ANALGETIC AGENTS [Concomitant]
     Indication: PRODUCT USED FOR UNKNOWN INDICATION
  4. GLUCOCORTICOIDS [Concomitant]
     Indication: PRODUCT USED FOR UNKNOWN INDICATION
     Dosage: 40 MG
  5. NEBIVOLOL [Concomitant]
     Indication: HYPERTENSION
     Dosage: 2.5 MG / DAY: 0.5 IN 1 DAYS
  6. FUROSEMID [Concomitant]
     Indication: PRODUCT USED FOR UNKNOWN INDICATION
     Route: 048
     Dates: start: 2013
  7. RIVAROXABAN [Concomitant]
     Indication: ATRIAL FIBRILLATION
     Route: 048
  8. DIGOXIN [Concomitant]
     Indication: PRODUCT USED FOR UNKNOWN INDICATION
     Route: 048
  9. EUTHYROX [Concomitant]
     Indication: THYROID DISORDER
     Route: 048
  10. PANTOZOL [Concomitant]
     Indication: PRODUCT USED FOR UNKNOWN INDICATION
     Route: 048
  11. PREDNISOLON [Concomitant]
     Indication: RHEUMATOID ARTHRITIS
  12. MICTONORM [Concomitant]
     Indication: HYPERTONIC BLADDER
  13. NOVALGIN [Concomitant]
     Indication: RHEUMATOID ARTHRITIS
  14. VIGANTOLETTEN [Concomitant]
     Indication: OSTEOPOROSIS
     Route: 048
  15. ALENDRONIC ACID [Concomitant]
     Indication: OSTEOPOROSIS
     Route: 048
  16. BERODUAL [Concomitant]
     Indication: CHRONIC OBSTRUCTIVE PULMONARY DISEASE
     Dosage: 40 MG DAILY

REACTIONS (7)
  - Cardiac failure [Recovered/Resolved]
  - Drug hypersensitivity [Unknown]
  - Hypertensive crisis [Recovered/Resolved]
  - Dyspnoea [Recovered/Resolved]
  - Oedema [Recovered/Resolved]
  - Pleural effusion [Recovered/Resolved]
  - Pulmonary congestion [Recovered/Resolved]
